FAERS Safety Report 5750251-9 (Version None)
Quarter: 2008Q2

REPORT INFORMATION
  Report Type: 
  Country: None (occurrence: None)
  Receive Date: 20080523
  Receipt Date: 20080523
  Transmission Date: 20081010
  Serious: Yes (Death, Life-Threatening, Hospitalization)
  Sender: FDA-Public Use
  Company Number: None

PATIENT
  Age: 76 Year
  Sex: Female
  Weight: 115.6672 kg

DRUGS (1)
  1. DIGOXIN [Suspect]
     Indication: CARDIAC DISORDER
     Dates: start: 20080201, end: 20080304

REACTIONS (3)
  - HEART RATE IRREGULAR [None]
  - HYPOTENSION [None]
  - THERAPEUTIC AGENT TOXICITY [None]
